FAERS Safety Report 5799195-7 (Version None)
Quarter: 2008Q3

REPORT INFORMATION
  Report Type: 
  Country: None (occurrence: None)
  Receive Date: 20080701
  Receipt Date: 20080624
  Transmission Date: 20090109
  Serious: Yes (Hospitalization)
  Sender: FDA-Public Use
  Company Number: 163-21880-08050434

PATIENT
  Age: 76 Year
  Sex: Male

DRUGS (15)
  1. REVLIMID [Suspect]
     Indication: MULTIPLE MYELOMA
     Dosage: 10 MG, 1 IN 1 D, ORAL; 25-15 MG, DAILY, ORAL
     Route: 048
     Dates: start: 20080226
  2. REVLIMID [Suspect]
     Indication: MULTIPLE MYELOMA
     Dosage: 10 MG, 1 IN 1 D, ORAL; 25-15 MG, DAILY, ORAL
     Route: 048
     Dates: start: 20080508
  3. ZOCOR [Concomitant]
  4. FLOMAX [Concomitant]
  5. ASPIRIN [Concomitant]
  6. PLAVIX [Concomitant]
  7. LASIX [Concomitant]
  8. NORVASC [Concomitant]
  9. BLOOD THINNER (ANTICOAGULANT SODIUM CITRATE) [Concomitant]
  10. HYDROCODONE (HYDROCODONE) [Concomitant]
  11. NEXIUM [Concomitant]
  12. LOVENOX [Concomitant]
  13. COLACE (DOCUSATE SODIUM) [Concomitant]
  14. MILK OF MAGNESIA TAB [Concomitant]
  15. ALTACE [Concomitant]

REACTIONS (7)
  - FATIGUE [None]
  - MALAISE [None]
  - MUSCLE SPASMS [None]
  - NEUTROPENIA [None]
  - THROMBOCYTOPENIA [None]
  - VIRAL INFECTION [None]
  - WEIGHT DECREASED [None]
